FAERS Safety Report 6425957-9 (Version None)
Quarter: 2009Q4

REPORT INFORMATION
  Report Type: 
  Country: None (occurrence: None)
  Receive Date: 20091103
  Receipt Date: 20091103
  Transmission Date: 20100525
  Serious: No
  Sender: FDA-Public Use
  Company Number: None

PATIENT
  Age: 53 Year
  Sex: Male

DRUGS (1)
  1. LORAZEPAM [Suspect]
     Dates: start: 20080903

REACTIONS (3)
  - AGITATION [None]
  - CONFUSIONAL STATE [None]
  - PYREXIA [None]
